FAERS Safety Report 15371646 (Version 1)
Quarter: 2018Q3

REPORT INFORMATION
  Report Type: Spontaneous
  Country: JP (occurrence: JP)
  Receive Date: 20180911
  Receipt Date: 20180911
  Transmission Date: 20181010
  Serious: Yes (Life-Threatening)
  Sender: FDA-Public Use
  Company Number: PHBS1998JP19329

PATIENT
  Age: 22 Year
  Sex: Male

DRUGS (5)
  1. SANDIMMUNE [Suspect]
     Active Substance: CYCLOSPORINE
     Indication: BEHCET^S SYNDROME
     Dosage: 100 MG, UNK
     Route: 048
  2. SANDIMMUNE [Suspect]
     Active Substance: CYCLOSPORINE
     Dosage: 180 MG, UNK
     Route: 048
     Dates: start: 19890523, end: 19900731
  3. SANDIMMUNE [Suspect]
     Active Substance: CYCLOSPORINE
     Dosage: 140 MG, UNK
     Route: 048
     Dates: start: 19900801, end: 19900818
  4. SANDIMMUNE [Suspect]
     Active Substance: CYCLOSPORINE
     Dosage: 200 MG, UNK
     Route: 048
     Dates: start: 19880825, end: 19890522
  5. SANDIMMUNE [Suspect]
     Active Substance: CYCLOSPORINE
     Dosage: 100 MG, UNK
     Route: 048
     Dates: start: 19900819

REACTIONS (10)
  - Ataxia [Unknown]
  - Dysphagia [Recovering/Resolving]
  - Dysarthria [Recovering/Resolving]
  - Pleocytosis [Recovered/Resolved]
  - Speech disorder [Recovered/Resolved]
  - Coordination abnormal [Recovered/Resolved]
  - Fatigue [Recovered/Resolved]
  - Pyrexia [Recovered/Resolved]
  - Affect lability [Recovered/Resolved]
  - Headache [Recovered/Resolved]

NARRATIVE: CASE EVENT DATE: 19900728
